FAERS Safety Report 9354849 (Version 1)
Quarter: 2013Q2

REPORT INFORMATION
  Report Type: Spontaneous
  Country: US (occurrence: US)
  Receive Date: 20130619
  Receipt Date: 20130619
  Transmission Date: 20140414
  Serious: Yes (Hospitalization)
  Sender: FDA-Public Use
  Company Number: US-AMGEN-USASP2013033977

PATIENT
  Age: 64 Year
  Sex: Female
  Weight: 67.57 kg

DRUGS (11)
  1. NPLATE [Suspect]
     Indication: IDIOPATHIC THROMBOCYTOPENIC PURPURA
     Dosage: 156 MUG, UNK
     Route: 058
     Dates: start: 20121119
  2. PREDNISONE [Concomitant]
     Dosage: 20 MG, BID
     Dates: start: 20121120
  3. BONIVA [Concomitant]
     Dosage: 150 MG, QMO
     Dates: start: 20120117
  4. CRESTOR [Concomitant]
  5. DIOVAN [Concomitant]
  6. NEXIUM                             /01479302/ [Concomitant]
  7. CENTRUM                            /07499601/ [Concomitant]
     Dosage: UNK UNK, QD
     Dates: start: 20120117
  8. GLIMEPIRIDE [Concomitant]
     Dosage: 8 MG, QD
     Dates: start: 20120215
  9. JANUVIA [Concomitant]
     Dosage: 100 MG, QD
     Dates: start: 20120215
  10. PANTOPRAZOLE [Concomitant]
     Dosage: 40 MG, UNK
     Dates: start: 20121010
  11. SINGULAIR [Concomitant]
     Dosage: 4 MG, QD
     Dates: start: 20120117

REACTIONS (1)
  - Thrombocytopenia [Unknown]
